FAERS Safety Report 16950879 (Version 1)
Quarter: 2019Q4

REPORT INFORMATION
  Report Type: Spontaneous
  Country: US (occurrence: US)
  Receive Date: 20191022
  Receipt Date: 20191022
  Transmission Date: 20200122
  Serious: Yes (Other)
  Sender: FDA-Public Use
  Company Number: None

PATIENT
  Age: 42 Year
  Sex: Female
  Weight: 58.5 kg

DRUGS (1)
  1. SOOLANTRA [Suspect]
     Active Substance: IVERMECTIN
     Indication: ROSACEA
     Dosage: ?          QUANTITY:1 PEA SIZE;?
     Route: 061
     Dates: start: 20191010, end: 20191018

REACTIONS (5)
  - Dyspnoea [None]
  - Erythema [None]
  - Fatigue [None]
  - Flushing [None]
  - Asthma [None]

NARRATIVE: CASE EVENT DATE: 20191010
